FAERS Safety Report 14120057 (Version 1)
Quarter: 2017Q4

REPORT INFORMATION
  Report Type: Spontaneous
  Country: US (occurrence: None)
  Receive Date: 20171024
  Receipt Date: 20171024
  Transmission Date: 20180321
  Serious: No
  Sender: FDA-Public Use
  Company Number: None

PATIENT
  Age: 44 Year
  Sex: Female

DRUGS (1)
  1. MYCOPHENOLATE MOF TAB 500MG [Suspect]
     Active Substance: MYCOPHENOLATE MOFETIL

REACTIONS (5)
  - Back pain [None]
  - Migraine [None]
  - Nausea [None]
  - Decreased appetite [None]
  - Diarrhoea [None]

NARRATIVE: CASE EVENT DATE: 20130101
